FAERS Safety Report 21727678 (Version 2)
Quarter: 2025Q4

REPORT INFORMATION
  Report Type: Spontaneous
  Country: US (occurrence: US)
  Receive Date: 20221214
  Receipt Date: 20251117
  Transmission Date: 20260118
  Serious: No
  Sender: VERTEX
  Company Number: US-VERTEX PHARMACEUTICALS-2022-000273

PATIENT
  Age: 31 Year
  Sex: Female

DRUGS (2)
  1. TRIKAFTA [Suspect]
     Active Substance: ELEXACAFTOR\IVACAFTOR\TEZACAFTOR
     Indication: Cystic fibrosis
     Dosage: 2 ORANGE TABS,AM/1 BLUE TAB,PM(FULL DOSE
     Route: 048
     Dates: start: 20210130, end: 20220112
  2. TRIKAFTA [Suspect]
     Active Substance: ELEXACAFTOR\IVACAFTOR\TEZACAFTOR
     Dosage: 2 ORANGE TABS,AM/1 BLUE TAB,PM(FULL DOSE)
     Route: 048
     Dates: start: 20220603

REACTIONS (3)
  - Premature delivery [Unknown]
  - Illness [Unknown]
  - Exposure during pregnancy [Unknown]

NARRATIVE: CASE EVENT DATE: 20211201
